FAERS Safety Report 5223946-3 (Version None)
Quarter: 2007Q1

REPORT INFORMATION
  Report Type: 
  Country: None (occurrence: None)
  Receive Date: 20070130
  Receipt Date: 20070126
  Transmission Date: 20070707
  Serious: Yes (Disabling, Other)
  Sender: FDA-Public Use
  Company Number: DE-BRISTOL-MYERS SQUIBB COMPANY-13602602

PATIENT
  Age: 19 Year
  Sex: Female
  Weight: 50 kg

DRUGS (2)
  1. BILKLIN [Suspect]
     Indication: EYE INJURY
     Route: 031
     Dates: start: 20061115
  2. VANCOMYCIN [Suspect]
     Indication: EYE INJURY
     Route: 031
     Dates: start: 20061115

REACTIONS (4)
  - RETINAL DISORDER [None]
  - RETINAL ISCHAEMIA [None]
  - RETINAL OEDEMA [None]
  - VISUAL ACUITY REDUCED [None]
